FAERS Safety Report 25029276 (Version 3)
Quarter: 2025Q3

REPORT INFORMATION
  Report Type: Spontaneous
  Country: JP (occurrence: JP)
  Receive Date: 20250303
  Receipt Date: 20250813
  Transmission Date: 20251020
  Serious: No
  Sender: GALDERMA
  Company Number: JP-GALDERMA-JP2025002699

PATIENT

DRUGS (4)
  1. NEMOLIZUMAB [Suspect]
     Active Substance: NEMOLIZUMAB
     Indication: Dermatitis atopic
     Route: 058
     Dates: start: 20241207, end: 20241207
  2. NEMOLIZUMAB [Suspect]
     Active Substance: NEMOLIZUMAB
     Route: 058
  3. ALLELOCK [Concomitant]
     Active Substance: OLOPATADINE HYDROCHLORIDE
     Indication: Product used for unknown indication
     Route: 048
     Dates: start: 202406
  4. CRYPTOMERIA JAPONICA POLLEN [Concomitant]
     Active Substance: CRYPTOMERIA JAPONICA POLLEN
     Indication: Product used for unknown indication
     Route: 048
     Dates: start: 202406

REACTIONS (1)
  - Gastrointestinal haemorrhage [Recovered/Resolved]

NARRATIVE: CASE EVENT DATE: 20250115
